FAERS Safety Report 10555930 (Version 2)
Quarter: 2014Q4

REPORT INFORMATION
  Report Type: Report from Study
  Country: US (occurrence: US)
  Receive Date: 20141030
  Receipt Date: 20141030
  Transmission Date: 20150529
  Serious: Yes (Hospitalization)
  Sender: FDA-Public Use
  Company Number: US-ACTELION-A-NJ2013-86846

PATIENT
  Age: 65 Year
  Sex: Female

DRUGS (9)
  1. PROZAC [Concomitant]
     Active Substance: FLUOXETINE HYDROCHLORIDE
     Dosage: 40 MG, UNK
     Route: 048
     Dates: start: 2012
  2. PHILLIPS COLON HEALTH [Concomitant]
     Dosage: 1 TABLET DAILY
     Route: 048
     Dates: start: 2012
  3. LASIX [Concomitant]
     Active Substance: FUROSEMIDE
     Dosage: 20 MG, QD
     Route: 048
     Dates: start: 2012
  4. VENTAVIS [Suspect]
     Active Substance: ILOPROST
     Indication: PULMONARY ARTERIAL HYPERTENSION
     Dosage: UNK
     Route: 055
  5. SONATA [Concomitant]
     Active Substance: ZALEPLON
     Dosage: 10 MG, PRN
     Route: 048
     Dates: start: 2012
  6. OXYGEN. [Concomitant]
     Active Substance: OXYGEN
  7. TRACLEER [Suspect]
     Active Substance: BOSENTAN\BOSENTAN MONOHYDRATE
     Indication: PULMONARY ARTERIAL HYPERTENSION
     Dosage: 125 MG, UNK
     Route: 048
     Dates: start: 2012
  8. TRACLEER [Suspect]
     Active Substance: BOSENTAN\BOSENTAN MONOHYDRATE
     Dosage: UNK
     Route: 048
     Dates: end: 2012
  9. OMEPRAZOLE. [Concomitant]
     Active Substance: OMEPRAZOLE
     Dosage: 20 MG, BID
     Route: 048
     Dates: start: 2012

REACTIONS (9)
  - Localised infection [Unknown]
  - Headache [Unknown]
  - Scleroderma [Unknown]
  - Calcinosis [Unknown]
  - Staphylococcal infection [Unknown]
  - Wound infection [Unknown]
  - Fungal infection [Unknown]
  - Vulvovaginal mycotic infection [Recovered/Resolved]
  - Epistaxis [Not Recovered/Not Resolved]

NARRATIVE: CASE EVENT DATE: 201204
